FAERS Safety Report 8807326 (Version 1)
Quarter: 2012Q4

REPORT INFORMATION
  Report Type: 
  Country: AR (occurrence: AR)
  Receive Date: 20120925
  Receipt Date: 20120925
  Transmission Date: 20130627
  Serious: Yes (Other)
  Sender: FDA-Public Use
  Company Number: AR-ROCHE-1131308

PATIENT
  Age: 82 Year
  Sex: Female

DRUGS (1)
  1. LUCENTIS [Suspect]
     Indication: VISUAL IMPAIRMENT
     Route: 050
     Dates: start: 20120810

REACTIONS (4)
  - Eye disorder [Recovering/Resolving]
  - Fall [Recovering/Resolving]
  - Eye injury [Recovering/Resolving]
  - Contusion [Recovering/Resolving]
